FAERS Safety Report 21342077 (Version 1)
Quarter: 2022Q3

REPORT INFORMATION
  Report Type: Spontaneous
  Country: CO (occurrence: CO)
  Receive Date: 20220916
  Receipt Date: 20220916
  Transmission Date: 20221027
  Serious: Yes (Other)
  Sender: FDA-Public Use
  Company Number: CO-AMGEN-COLSP2022155514

PATIENT

DRUGS (1)
  1. PROLIA [Suspect]
     Active Substance: DENOSUMAB
     Indication: Osteoporosis
     Dosage: UNK
     Route: 065

REACTIONS (12)
  - Hip fracture [Unknown]
  - Pelvic fracture [Unknown]
  - Multiple fractures [Unknown]
  - Femur fracture [Unknown]
  - Spinal fracture [Unknown]
  - Radius fracture [Unknown]
  - Scapula fracture [Unknown]
  - Ankle fracture [Unknown]
  - Ulna fracture [Unknown]
  - Humerus fracture [Unknown]
  - Fall [Unknown]
  - Drug ineffective [Unknown]
